FAERS Safety Report 16880748 (Version 7)
Quarter: 2020Q2

REPORT INFORMATION
  Report Type: Spontaneous
  Country: US (occurrence: US)
  Receive Date: 20191003
  Receipt Date: 20200512
  Transmission Date: 20200713
  Serious: Yes (Other)
  Sender: FDA-Public Use
  Company Number: US-PFIZER INC-2019424070

PATIENT
  Age: 48 Year
  Sex: Male

DRUGS (2)
  1. XELJANZ XR [Suspect]
     Active Substance: TOFACITINIB CITRATE
     Dosage: 11 MG
     Dates: start: 201909, end: 2019
  2. XELJANZ XR [Suspect]
     Active Substance: TOFACITINIB CITRATE
     Dosage: 11 MG
     Dates: start: 202004

REACTIONS (6)
  - Paranasal sinus discomfort [Unknown]
  - Product dose omission [Unknown]
  - Migraine [Unknown]
  - Drug ineffective [Unknown]
  - Infected cyst [Unknown]
  - Skin infection [Unknown]

NARRATIVE: CASE EVENT DATE: 2019
